FAERS Safety Report 17316390 (Version 1)
Quarter: 2020Q1

REPORT INFORMATION
  Report Type: Spontaneous
  Country: ID (occurrence: ID)
  Receive Date: 20200124
  Receipt Date: 20200124
  Transmission Date: 20200409
  Serious: Yes (Other)
  Sender: FDA-Public Use
  Company Number: ID-TAKEDA-2020TUS004658

PATIENT
  Age: 50 Year
  Sex: Male

DRUGS (1)
  1. FEBURIC [Suspect]
     Active Substance: FEBUXOSTAT
     Indication: PRODUCT USED FOR UNKNOWN INDICATION
     Dosage: 40 MILLIGRAM, QD
     Route: 048

REACTIONS (3)
  - Thrombosis [Unknown]
  - Off label use [Unknown]
  - Embolism [Unknown]

NARRATIVE: CASE EVENT DATE: 20200117
